FAERS Safety Report 4276193-6 (Version None)
Quarter: 2004Q1

REPORT INFORMATION
  Report Type: 
  Country: None (occurrence: None)
  Receive Date: 20040121
  Receipt Date: 20020620
  Transmission Date: 20041129
  Serious: No
  Sender: FDA-Public Use
  Company Number: US-GLAXOSMITHKLINE-A0372505A

PATIENT
  Age: 56 Year
  Sex: Female
  Weight: 74.5 kg

DRUGS (3)
  1. ZIAGEN [Suspect]
     Indication: HIV INFECTION
     Dosage: 300MG TWICE PER DAY
     Route: 048
     Dates: start: 20020214, end: 20020227
  2. RETROVIR [Concomitant]
     Indication: HIV INFECTION
     Dosage: 300MG TWICE PER DAY
     Route: 065
     Dates: start: 20020214, end: 20020227
  3. SUSTIVA [Concomitant]
     Indication: HIV INFECTION
     Dosage: 600MG AT NIGHT
     Route: 048
     Dates: start: 20020214, end: 20020227

REACTIONS (10)
  - ARTHRALGIA [None]
  - CHEST PAIN [None]
  - DYSPNOEA [None]
  - HYPERSENSITIVITY [None]
  - MALAISE [None]
  - MYALGIA [None]
  - PAIN [None]
  - PYREXIA [None]
  - RASH GENERALISED [None]
  - URTICARIA [None]
